FAERS Safety Report 21650963 (Version 1)
Quarter: 2022Q4

REPORT INFORMATION
  Report Type: Spontaneous
  Country: US (occurrence: US)
  Receive Date: 20221128
  Receipt Date: 20221128
  Transmission Date: 20230113
  Serious: Yes (Life-Threatening, Other)
  Sender: FDA-Public Use
  Company Number: US-PFIZER INC-2016554761

PATIENT
  Age: 73 Year
  Sex: Female

DRUGS (3)
  1. VANCOMYCIN HYDROCHLORIDE [Suspect]
     Active Substance: VANCOMYCIN HYDROCHLORIDE
     Indication: Pneumonia
     Dosage: UNK
     Route: 042
  2. ERYTHROMYCIN [Suspect]
     Active Substance: ERYTHROMYCIN
     Indication: Pneumonia
     Dosage: UNK
  3. TICARCILLIN [Suspect]
     Active Substance: TICARCILLIN
     Indication: Pneumonia
     Dosage: UNK

REACTIONS (1)
  - Thrombocytopenia [Recovered/Resolved]
